FAERS Safety Report 13298445 (Version 1)
Quarter: 2017Q1

REPORT INFORMATION
  Report Type: Spontaneous
  Country: GB (occurrence: GB)
  Receive Date: 20170306
  Receipt Date: 20170306
  Transmission Date: 20170428
  Serious: Yes (Life-Threatening, Hospitalization)
  Sender: FDA-Public Use
  Company Number: GB-TEVA-744545ACC

PATIENT
  Age: 84 Year
  Sex: Female

DRUGS (16)
  1. CALCICHEW D3 [Concomitant]
     Active Substance: CALCIUM\CHOLECALCIFEROL
  2. CYCLIZINE [Concomitant]
     Active Substance: CYCLIZINE
  3. DIGOXIN. [Concomitant]
     Active Substance: DIGOXIN
  4. WARFARIN SODIUM. [Suspect]
     Active Substance: WARFARIN SODIUM
     Dates: end: 20170131
  5. CARBOMER [Concomitant]
     Active Substance: CARBOMER
  6. FUROSEMIDE. [Concomitant]
     Active Substance: FUROSEMIDE
  7. ATORVASTATIN [Concomitant]
     Active Substance: ATORVASTATIN
  8. LATANOPROST. [Concomitant]
     Active Substance: LATANOPROST
  9. OLANZAPINE. [Concomitant]
     Active Substance: OLANZAPINE
  10. TIOTROPIUM BROMIDE [Concomitant]
     Active Substance: TIOTROPIUM BROMIDE
  11. CARBOCYSTEINE [Concomitant]
     Active Substance: CARBOCYSTEINE
  12. FERROUS FUMARATE [Concomitant]
     Active Substance: FERROUS FUMARATE
  13. INDACATEROL [Concomitant]
     Active Substance: INDACATEROL
  14. FLUTICASONE PROPIONATE. [Concomitant]
     Active Substance: FLUTICASONE PROPIONATE
  15. PARACETAMOL [Concomitant]
     Active Substance: ACETAMINOPHEN
  16. SALBUTAMOL BASE [Concomitant]

REACTIONS (2)
  - Haemorrhage intracranial [Recovering/Resolving]
  - Fall [Unknown]
